FAERS Safety Report 16041778 (Version 1)
Quarter: 2019Q1

REPORT INFORMATION
  Report Type: Spontaneous
  Country: US (occurrence: US)
  Receive Date: 20190306
  Receipt Date: 20190306
  Transmission Date: 20190418
  Serious: No
  Sender: FDA-Public Use
  Company Number: US-AKORN PHARMACEUTICALS-2018AKN00563

PATIENT
  Age: 15 Year
  Sex: Female
  Weight: 65.76 kg

DRUGS (3)
  1. MYORISAN [Suspect]
     Active Substance: ISOTRETINOIN
     Indication: ACNE
     Dosage: 40 MG, 1X/DAY
     Route: 048
     Dates: start: 20171217, end: 20180220
  2. MULTIVITAMIN [Concomitant]
     Active Substance: VITAMINS
  3. MYORISAN [Suspect]
     Active Substance: ISOTRETINOIN
     Dosage: 80 MG, 1X/DAY
     Route: 048
     Dates: start: 20180220, end: 20180404

REACTIONS (5)
  - Abdominal pain upper [Recovered/Resolved]
  - Dermatitis [Recovered/Resolved]
  - Haematochezia [Recovered/Resolved]
  - Off label use [Recovered/Resolved]
  - Vision blurred [Recovered/Resolved]

NARRATIVE: CASE EVENT DATE: 20171217
